FAERS Safety Report 16513290 (Version 17)
Quarter: 2021Q4

REPORT INFORMATION
  Report Type: Report from Study
  Country: CA (occurrence: CA)
  Receive Date: 20190701
  Receipt Date: 20211118
  Transmission Date: 20220303
  Serious: Yes (Hospitalization, Other)
  Sender: FDA-Public Use
  Company Number: PHHY2016CA090447

PATIENT
  Age: 28 Year
  Sex: Female

DRUGS (8)
  1. SANDOSTATIN LAR DEPOT [Suspect]
     Active Substance: OCTREOTIDE ACETATE
     Indication: Acromegaly
     Dosage: 30 MG, QMO
     Route: 030
     Dates: start: 20160622
  2. SANDOSTATIN LAR DEPOT [Suspect]
     Active Substance: OCTREOTIDE ACETATE
     Dosage: 40 MG, Q4W (EVERY 4 WEEKS)
     Route: 030
     Dates: start: 20160622
  3. SANDOSTATIN LAR DEPOT [Suspect]
     Active Substance: OCTREOTIDE ACETATE
     Dosage: 40 MG, QMO
     Route: 030
     Dates: start: 20170105
  4. TYLENOL [Concomitant]
     Active Substance: ACETAMINOPHEN
     Indication: Product used for unknown indication
     Dosage: 650 MG, PRN
     Route: 065
  5. DDAVP [Concomitant]
     Active Substance: DESMOPRESSIN ACETATE
     Indication: Product used for unknown indication
     Dosage: 0.1 MG, QHS
     Route: 065
  6. CORTEF [Concomitant]
     Active Substance: HYDROCORTISONE
     Indication: Product used for unknown indication
     Dosage: 1 DF, BID (15 MG IN MORNING  AND 5 MG IN EVENING) (ONCE DAILY MORNING)
     Route: 065
  7. CORTEF [Concomitant]
     Active Substance: HYDROCORTISONE
     Dosage: 5 MG, QD (ONCE DAILY (PM))
     Route: 065
  8. SYNTHROID [Concomitant]
     Active Substance: LEVOTHYROXINE SODIUM
     Indication: Product used for unknown indication
     Dosage: 0.125 UG, QD
     Route: 065

REACTIONS (29)
  - Weight decreased [Unknown]
  - Eating disorder [Unknown]
  - Gait disturbance [Unknown]
  - Renal disorder [Unknown]
  - Congenital cystic kidney disease [Unknown]
  - Abdominal pain lower [Unknown]
  - Pain [Unknown]
  - Vomiting [Unknown]
  - Tonsillitis [Unknown]
  - Neoplasm progression [Unknown]
  - Sudden visual loss [Recovered/Resolved]
  - Renal cyst [Unknown]
  - General physical health deterioration [Unknown]
  - Pyrexia [Unknown]
  - Diarrhoea [Unknown]
  - Headache [Unknown]
  - Blood pressure increased [Unknown]
  - Food poisoning [Unknown]
  - Ear infection [Unknown]
  - Insomnia [Unknown]
  - Rhinorrhoea [Unknown]
  - Influenza [Recovered/Resolved]
  - Fatigue [Unknown]
  - Abdominal pain [Unknown]
  - Dizziness [Unknown]
  - Heart rate increased [Unknown]
  - Nausea [Unknown]
  - Injection site pain [Unknown]
  - Injection site bruising [Not Recovered/Not Resolved]

NARRATIVE: CASE EVENT DATE: 20160623
